FAERS Safety Report 20451181 (Version 1)
Quarter: 2022Q1

REPORT INFORMATION
  Report Type: Spontaneous
  Country: US (occurrence: US)
  Receive Date: 20220209
  Receipt Date: 20220209
  Transmission Date: 20220424
  Serious: No
  Sender: FDA-Public Use
  Company Number: US-SA-SAC20220204001123

PATIENT
  Age: 70 Year
  Sex: Female

DRUGS (1)
  1. KEVZARA [Suspect]
     Active Substance: SARILUMAB
     Dosage: KEVZARA 200 MG/1.14ML PEN 2PK DOSE: 200MG/1.14
     Route: 058
     Dates: start: 202111

REACTIONS (2)
  - Tooth infection [Unknown]
  - Intentional dose omission [Unknown]
